FAERS Safety Report 22588830 (Version 1)
Quarter: 2023Q2

REPORT INFORMATION
  Report Type: Spontaneous
  Country: US (occurrence: US)
  Receive Date: 20230612
  Receipt Date: 20230612
  Transmission Date: 20230722
  Serious: Yes (Hospitalization, Other)
  Sender: FDA-Public Use
  Company Number: US-SA-SAC20230609001142

PATIENT
  Age: 56 Year
  Sex: Female

DRUGS (9)
  1. DUPIXENT [Suspect]
     Active Substance: DUPILUMAB
     Indication: Asthma
     Dosage: 1 DF, QOW ( INJECT 1 PEN UNDER THE SKIN ONCE EVERY 14 DAYS)
     Route: 058
     Dates: start: 20221025
  2. WARFARIN [Concomitant]
     Active Substance: WARFARIN
  3. SPIRONOLACTONE [Concomitant]
     Active Substance: SPIRONOLACTONE
  4. PREDNISONE [Concomitant]
     Active Substance: PREDNISONE
  5. POTASSIUM NITRATE [Concomitant]
     Active Substance: POTASSIUM NITRATE
  6. PANTOPRAZOLE [Concomitant]
     Active Substance: PANTOPRAZOLE
  7. MONTELUKAST [Concomitant]
     Active Substance: MONTELUKAST SODIUM
  8. METOPROLOL [Concomitant]
     Active Substance: METOPROLOL
  9. MELOXICAM [Concomitant]
     Active Substance: MELOXICAM

REACTIONS (1)
  - Atrial fibrillation [Unknown]
